FAERS Safety Report 24161895 (Version 1)
Quarter: 2024Q3

REPORT INFORMATION
  Report Type: Spontaneous
  Country: US (occurrence: US)
  Receive Date: 20240801
  Receipt Date: 20240801
  Transmission Date: 20241016
  Serious: No
  Sender: ALLERMED LABORATORIES
  Company Number: US-Allermed Laboratories, Inc.-2159847

PATIENT
  Age: 33 Year
  Sex: Female

DRUGS (1)
  1. CYNODON DACTYLON POLLEN [Suspect]
     Active Substance: CYNODON DACTYLON POLLEN
     Indication: Seasonal allergy
     Route: 058

REACTIONS (1)
  - Injection site reaction [Recovered/Resolved]
